FAERS Safety Report 7278958-5 (Version None)
Quarter: 2011Q1

REPORT INFORMATION
  Report Type: 
  Country: None (occurrence: None)
  Receive Date: 20110207
  Receipt Date: 20110127
  Transmission Date: 20110831
  Serious: Yes (Death, Hospitalization)
  Sender: FDA-Public Use
  Company Number: IT-CELGENEUS-083-21880-10122841

PATIENT
  Sex: Female

DRUGS (5)
  1. REVLIMID [Suspect]
     Indication: OFF LABEL USE
  2. RITUXIMAB [Concomitant]
     Indication: LYMPHOMA
     Route: 065
     Dates: start: 20100825
  3. SOLDESAM [Concomitant]
     Indication: LYMPHOMA
     Route: 065
     Dates: start: 20100904, end: 20100918
  4. REVLIMID [Suspect]
     Indication: LYMPHOMA
     Route: 048
     Dates: start: 20100820, end: 20101005
  5. VINCRISTINE [Concomitant]
     Indication: LYMPHOMA
     Route: 065
     Dates: start: 20100904, end: 20100918

REACTIONS (2)
  - DYSPNOEA [None]
  - LYMPHOMA [None]
